FAERS Safety Report 6239952-6 (Version None)
Quarter: 2009Q2

REPORT INFORMATION
  Report Type: 
  Country: None (occurrence: None)
  Receive Date: 20090618
  Receipt Date: 20090618
  Transmission Date: 20091009
  Serious: No
  Sender: FDA-Public Use
  Company Number: None

PATIENT
  Sex: Male
  Weight: 71.6683 kg

DRUGS (4)
  1. LIPITOR [Suspect]
     Indication: ACUTE CORONARY SYNDROME
     Dates: start: 20050726, end: 20080528
  2. LIPITOR [Suspect]
     Indication: CORONARY ANGIOPLASTY
     Dates: start: 20050726, end: 20080528
  3. LIPITOR [Suspect]
     Indication: CORONARY ARTERY DISEASE
     Dates: start: 20050726, end: 20080528
  4. ALL STATINS [Concomitant]

REACTIONS (8)
  - ASTHENIA [None]
  - DIZZINESS [None]
  - EJACULATION FAILURE [None]
  - HEADACHE [None]
  - HYPERACUSIS [None]
  - NAUSEA [None]
  - NERVOUS SYSTEM DISORDER [None]
  - TINNITUS [None]
